FAERS Safety Report 6404770-2 (Version None)
Quarter: 2009Q4

REPORT INFORMATION
  Report Type: 
  Country: None (occurrence: None)
  Receive Date: 20091016
  Receipt Date: 20091013
  Transmission Date: 20100525
  Serious: Yes (Death, Hospitalization)
  Sender: FDA-Public Use
  Company Number: FR-SOLVAY-00209005999

PATIENT
  Age: 27944 Day
  Sex: Female

DRUGS (4)
  1. COVERSYL 10 MG [Suspect]
     Indication: DRUG USE FOR UNKNOWN INDICATION
     Dosage: DAILY DOSE: 10 MILLIGRAM(S)
     Route: 048
  2. LIPANTHYL 145 MG [Suspect]
     Indication: DYSLIPIDAEMIA
     Dosage: DAILY DOSE: 145 MILLIGRAM(S)
     Route: 048
  3. PNEUMO 23 [Suspect]
     Indication: DRUG USE FOR UNKNOWN INDICATION
     Dosage: DAILY DOSE: 1 DOSAGE FORM, FREQUENCY: ONCE
     Route: 030
     Dates: start: 20090902, end: 20090902
  4. ASPEGIC 100 MG [Suspect]
     Indication: DRUG USE FOR UNKNOWN INDICATION
     Dosage: DAILY DOSE: 100 MILLIGRAM(S)
     Route: 048

REACTIONS (7)
  - ASTHENIA [None]
  - HYPOTENSION [None]
  - INTESTINAL INFARCTION [None]
  - MALAISE [None]
  - PANCREATITIS ACUTE [None]
  - PANCREATITIS HAEMORRHAGIC [None]
  - VOMITING [None]
